FAERS Safety Report 6109352-8 (Version None)
Quarter: 2009Q1

REPORT INFORMATION
  Report Type: 
  Country: None (occurrence: None)
  Receive Date: 20090306
  Receipt Date: 20090218
  Transmission Date: 20090719
  Serious: Yes (Hospitalization)
  Sender: FDA-Public Use
  Company Number: 062750-2009-00002

PATIENT
  Age: 27 Year
  Sex: Male

DRUGS (1)
  1. ZICAM COUGH MAX COUGH SPRAY [Suspect]
     Indication: INTENTIONAL DRUG MISUSE
     Dates: start: 20090217, end: 20090218

REACTIONS (6)
  - BRADYPHRENIA [None]
  - HALLUCINATION [None]
  - INTENTIONAL DRUG MISUSE [None]
  - PSYCHIATRIC SYMPTOM [None]
  - SPEECH DISORDER [None]
  - VOMITING [None]
